FAERS Safety Report 17528032 (Version 1)
Quarter: 2020Q1

REPORT INFORMATION
  Report Type: Report from Study
  Country: US (occurrence: US)
  Receive Date: 20200311
  Receipt Date: 20200311
  Transmission Date: 20200409
  Serious: Yes (Hospitalization, Other)
  Sender: FDA-Public Use
  Company Number: US-GILEAD-2020-0454377

PATIENT
  Age: 24 Year
  Sex: Female

DRUGS (6)
  1. NEURONTIN [Concomitant]
     Active Substance: GABAPENTIN
  2. ALBUTEROL [SALBUTAMOL] [Concomitant]
     Active Substance: ALBUTEROL
  3. KEPPRA [Concomitant]
     Active Substance: LEVETIRACETAM
  4. FENOFIBRATE. [Concomitant]
     Active Substance: FENOFIBRATE
  5. FLOVENT [Concomitant]
     Active Substance: FLUTICASONE PROPIONATE
  6. AZTREONAM LYSINE [Suspect]
     Active Substance: AZTREONAM LYSINE
     Indication: ACUTE RESPIRATORY FAILURE
     Dosage: 1 DOSAGE FORM, TID, 28 DAYS ON AND 28 DAYS OFF
     Route: 055
     Dates: start: 20170315

REACTIONS (2)
  - Off label use [Not Recovered/Not Resolved]
  - Pneumonia [Not Recovered/Not Resolved]

NARRATIVE: CASE EVENT DATE: 20170315
